FAERS Safety Report 4471459-9 (Version None)
Quarter: 2004Q4

REPORT INFORMATION
  Report Type: 
  Country: None (occurrence: None)
  Receive Date: 20041007
  Receipt Date: 20041007
  Transmission Date: 20050328
  Serious: Yes (Disabling, Other)
  Sender: FDA-Public Use
  Company Number: None

PATIENT
  Age: 58 Year
  Sex: Male
  Weight: 113.3993 kg

DRUGS (2)
  1. ZICAM-COLD [Suspect]
     Indication: NASAL CONGESTION
     Dosage: EVERY 4 HRS
     Route: 045
     Dates: start: 20030101
  2. ZICAM - SINUS [Suspect]
     Indication: LACRIMATION INCREASED
     Dosage: DAY + EVENING
     Route: 045
     Dates: start: 20040101

REACTIONS (1)
  - PAROSMIA [None]
